FAERS Safety Report 10244853 (Version 2)
Quarter: 2014Q2

REPORT INFORMATION
  Report Type: Spontaneous
  Country: CH (occurrence: CH)
  Receive Date: 20140618
  Receipt Date: 20140618
  Transmission Date: 20141212
  Serious: Yes (Hospitalization)
  Sender: FDA-Public Use
  Company Number: PHHY2014CH012042

PATIENT
  Age: 83 Year
  Sex: Male
  Weight: 77.4 kg

DRUGS (27)
  1. DIOVAN [Suspect]
     Indication: ESSENTIAL HYPERTENSION
     Dosage: 80 MG, DAILY
     Route: 048
     Dates: start: 20131223, end: 20131226
  2. AMLODIPINE [Interacting]
     Indication: ESSENTIAL HYPERTENSION
     Dosage: 5 MG, DAILY
     Route: 048
     Dates: start: 20131223
  3. VANCOMYCIN [Interacting]
     Indication: STAPHYLOCOCCAL SEPSIS
     Dosage: 1 G, Q12H
     Route: 041
     Dates: start: 20131217, end: 20131220
  4. GARAMYCIN [Interacting]
     Indication: STAPHYLOCOCCAL SEPSIS
     Dosage: 80 MG, Q8H
     Route: 041
     Dates: start: 20131217, end: 20131220
  5. GARAMYCIN [Interacting]
     Dosage: 1 DF (300 MG), DAILY
  6. CLAMOXYL [Suspect]
     Indication: SEPSIS
     Dosage: 2 G, Q8H
     Route: 041
     Dates: start: 20131217, end: 20131230
  7. ZYLORIC [Interacting]
     Indication: GOUT
     Dosage: 300 MG, DAILY
     Route: 048
     Dates: end: 20131226
  8. CLEXANE [Concomitant]
     Indication: THROMBOSIS PROPHYLAXIS
     Dosage: 40 MG, DAILY
     Route: 058
     Dates: start: 20131216, end: 20131218
  9. ARIXTRA [Concomitant]
     Indication: THROMBOSIS PROPHYLAXIS
     Dosage: 2.4 MG, DAILY
     Route: 058
     Dates: start: 20131218, end: 20131226
  10. ARIXTRA [Concomitant]
     Dosage: 2.5 MG, QD
     Route: 058
     Dates: start: 20131218, end: 20131226
  11. AUGMENTIN [Concomitant]
     Indication: MENINGITIS
     Dosage: 1.2 G, Q8H
     Route: 041
     Dates: start: 20131216, end: 20131217
  12. AUGMENTIN [Concomitant]
     Indication: SEPSIS
  13. ASPIRIN [Concomitant]
     Indication: ISCHAEMIC CARDIOMYOPATHY
     Dosage: 100 MG, DAILY
     Route: 048
  14. NEXIUM//ESOMEPRAZOLE MAGNESIUM [Concomitant]
     Indication: GASTROOESOPHAGEAL REFLUX PROPHYLAXIS
     Dosage: 20 MG, DAILY
     Route: 048
  15. TEMESTA [Concomitant]
     Indication: ANXIETY
     Dosage: 1 MG, DAILY
     Route: 048
  16. PRAVASTATINE [Concomitant]
     Indication: HYPERCHOLESTEROLAEMIA
     Dosage: 40 MG, DAILY
     Route: 048
  17. DAFALGAN [Concomitant]
     Indication: PYREXIA
     Dosage: 1 G, DAILY
     Route: 048
     Dates: start: 20131222
  18. DAFALGAN [Concomitant]
     Dosage: 1 G, TID
     Route: 048
     Dates: start: 20131216, end: 20131226
  19. DAFALGAN [Concomitant]
     Dosage: 1 G, DAILY
     Route: 048
  20. PERFALGAN [Concomitant]
     Indication: PYREXIA
     Dosage: 1 G, UNK
     Route: 041
     Dates: start: 20131216, end: 20131222
  21. SEVREDOL [Concomitant]
     Indication: PAIN
     Dosage: 5 MG, Q4H
     Route: 048
     Dates: start: 20131218, end: 20131226
  22. SEVREDOL [Concomitant]
     Dosage: UNK UKN, UNK
  23. LAXOBERON [Concomitant]
     Indication: CONSTIPATION
     Dosage: 10 MG, DAILY
     Route: 048
     Dates: start: 20131216
  24. PURSANA [Concomitant]
     Indication: CONSTIPATION
     Dosage: 15 ML, DAILY
     Route: 048
     Dates: start: 20131217
  25. AMOXICILLIN [Concomitant]
     Dosage: 2 G, PER HOUR
  26. ASPIRINE [Concomitant]
     Indication: MYOCARDIAL INFARCTION
     Dosage: 100 MG, QD
     Route: 048
  27. BELOC [Concomitant]
     Indication: ESSENTIAL HYPERTENSION
     Dosage: 50 MG, QD
     Route: 048

REACTIONS (2)
  - Renal failure acute [Recovered/Resolved]
  - Hypotension [Recovered/Resolved]
